FAERS Safety Report 8691144 (Version 2)
Quarter: 2012Q4

REPORT INFORMATION
  Report Type: 
  Country: US (occurrence: US)
  Receive Date: 20120730
  Receipt Date: 20121017
  Transmission Date: 20130627
  Serious: Yes (Hospitalization)
  Sender: FDA-Public Use
  Company Number: US-BAYER-2012-071737

PATIENT
  Age: 31 Year
  Sex: Female
  Weight: 79.37 kg

DRUGS (14)
  1. YAZ [Suspect]
     Indication: CONTRACEPTION
     Dosage: UNK
     Dates: start: 20080911, end: 201007
  2. GIANVI [Suspect]
     Indication: CONTRACEPTION
     Dosage: UNK
     Dates: start: 201007, end: 201101
  3. ULTRAM [Concomitant]
     Indication: PAIN
     Dosage: 50 mg, TID
     Route: 048
  4. PERCOCET [Concomitant]
     Indication: PAIN
     Dosage: TID, PRN
     Route: 048
  5. HUMIRA [Concomitant]
     Dosage: 40mg/0.8ml once every 2 weeks
     Route: 058
  6. METHOTREXATE SODIUM [Concomitant]
     Indication: RHEUMATOID ARTHRITIS
     Dosage: 2.5 mg/6 tablets once a week
     Route: 048
  7. METHOTREXATE SODIUM [Concomitant]
     Indication: RHEUMATOID ARTHRITIS
     Dosage: UNK
     Dates: start: 2008
  8. FOLIC ACID [Concomitant]
     Indication: RHEUMATOID ARTHRITIS
     Dosage: 1 mg, tablet daily
     Route: 048
     Dates: start: 2008
  9. ALEVE [Concomitant]
     Dosage: daily
     Route: 048
  10. PREDNISONE [Concomitant]
     Indication: RASH
     Dosage: UNK
     Route: 048
  11. ZYRTEC [Concomitant]
     Indication: RASH
     Dosage: 10 mg, one tablet daily
     Route: 048
  12. PRILOSEC [Concomitant]
     Dosage: 40 mg, UNK
  13. CLOBETASOL [Concomitant]
  14. CHANTIX [Concomitant]

REACTIONS (6)
  - Cholecystitis [None]
  - Injury [None]
  - Abdominal pain upper [None]
  - Nausea [None]
  - Vomiting [None]
  - Diarrhoea [None]
